FAERS Safety Report 8372253-9 (Version None)
Quarter: 2012Q2

REPORT INFORMATION
  Report Type: 
  Country: None (occurrence: None)
  Receive Date: 20120521
  Receipt Date: 20120510
  Transmission Date: 20120825
  Serious: Yes (Other)
  Sender: FDA-Public Use
  Company Number: TR-AMGEN-TURSP2012011307

PATIENT
  Age: 43 Year
  Sex: Female

DRUGS (2)
  1. ARAVA [Concomitant]
     Dosage: 20 MG, 1X/DAY
     Route: 048
     Dates: start: 20110501
  2. ENBREL [Suspect]
     Indication: RHEUMATOID ARTHRITIS
     Dosage: 50 MG, WEEKLY
     Route: 058
     Dates: start: 20101101, end: 20120203

REACTIONS (10)
  - TONSILLITIS [None]
  - ERYTHEMA [None]
  - COUGH [None]
  - BRONCHITIS [None]
  - TACHYCARDIA [None]
  - BLOOD PRESSURE INCREASED [None]
  - ARTHRALGIA [None]
  - INFLUENZA LIKE ILLNESS [None]
  - ALLERGIC PHARYNGITIS [None]
  - PYREXIA [None]
